FAERS Safety Report 4288364-3 (Version None)
Quarter: 2004Q1

REPORT INFORMATION
  Report Type: 
  Country: None (occurrence: None)
  Receive Date: 20040209
  Receipt Date: 20030919
  Transmission Date: 20041129
  Serious: No
  Sender: FDA-Public Use
  Company Number: US-GLAXOSMITHKLINE-A0426588A

PATIENT
  Sex: Female

DRUGS (6)
  1. PAXIL [Suspect]
     Dosage: 10MG PER DAY
     Route: 048
     Dates: start: 20030917
  2. FOSAMAX [Concomitant]
  3. COLACE [Concomitant]
  4. LORAZEPAM [Concomitant]
  5. ACIDOPHILUS [Concomitant]
  6. MULTIVITAMIN [Concomitant]

REACTIONS (2)
  - ANOREXIA [None]
  - NAUSEA [None]
